FAERS Safety Report 4285049-4 (Version None)
Quarter: 2004Q1

REPORT INFORMATION
  Report Type: 
  Country: None (occurrence: None)
  Receive Date: 20040204
  Receipt Date: 20031202
  Transmission Date: 20041129
  Serious: No
  Sender: FDA-Public Use
  Company Number: WAES 0312USA00374

PATIENT
  Age: 48 Year
  Sex: Male

DRUGS (2)
  1. NEXIUM [Concomitant]
  2. PROPECIA [Suspect]
     Indication: MALE PATTERN BALDNESS
     Route: 048
     Dates: start: 20030501, end: 20031201

REACTIONS (1)
  - LIVER FUNCTION TEST ABNORMAL [None]
